FAERS Safety Report 21745480 (Version 1)
Quarter: 2022Q4

REPORT INFORMATION
  Report Type: Spontaneous
  Country: US (occurrence: US)
  Receive Date: 20221219
  Receipt Date: 20221219
  Transmission Date: 20230113
  Serious: No
  Sender: FDA-Public Use
  Company Number: US-BRISTOL-MYERS SQUIBB COMPANY-2022-154651

PATIENT
  Age: 80 Year
  Sex: Female

DRUGS (1)
  1. POMALYST [Suspect]
     Active Substance: POMALIDOMIDE
     Indication: Bone cancer
     Dosage: DAILY FOR 2 WEEKS ON, 1 WEEK OFF
     Route: 048
     Dates: start: 20210615

REACTIONS (2)
  - Influenza [Recovered/Resolved]
  - Off label use [Unknown]
